FAERS Safety Report 24914534 (Version 1)
Quarter: 2025Q1

REPORT INFORMATION
  Report Type: Spontaneous
  Country: PE (occurrence: PE)
  Receive Date: 20250203
  Receipt Date: 20250203
  Transmission Date: 20250409
  Serious: Yes (Other)
  Sender: AMGEN
  Company Number: PE-PFIZER INC-PV202500005826

PATIENT
  Sex: Female

DRUGS (1)
  1. ENBREL [Suspect]
     Active Substance: ETANERCEPT
     Indication: Product used for unknown indication
     Route: 058
     Dates: start: 2022, end: 202501

REACTIONS (1)
  - Sjogren^s syndrome [Unknown]
